FAERS Safety Report 22005181 (Version 2)
Quarter: 2023Q1

REPORT INFORMATION
  Report Type: Spontaneous
  Country: US (occurrence: US)
  Receive Date: 20230217
  Receipt Date: 20230301
  Transmission Date: 20230417
  Serious: Yes (Other)
  Sender: FDA-Public Use
  Company Number: US-BAYER-2023A015578

PATIENT
  Age: 40 Year
  Sex: Female

DRUGS (1)
  1. MIRENA [Suspect]
     Active Substance: LEVONORGESTREL
     Indication: Polyp
     Dosage: 20?G/DAY
     Route: 015

REACTIONS (7)
  - Genital haemorrhage [None]
  - Device use issue [None]
  - Off label use of device [None]
  - Vaginal haemorrhage [None]
  - Amenorrhoea [None]
  - Back pain [None]
  - Nasopharyngitis [None]
